FAERS Safety Report 4657601-5 (Version None)
Quarter: 2005Q2

REPORT INFORMATION
  Report Type: 
  Country: None (occurrence: None)
  Receive Date: 20050405
  Receipt Date: 20040521
  Transmission Date: 20051028
  Serious: Yes (Other)
  Sender: FDA-Public Use
  Company Number: 2004032275

PATIENT
  Age: 5 Year
  Sex: Male

DRUGS (1)
  1. GEODON [Suspect]
     Indication: AGGRESSION
     Dosage: UNK (20 MG)

REACTIONS (1)
  - EXTRAPYRAMIDAL DISORDER [None]
